FAERS Safety Report 9498795 (Version 1)
Quarter: 2013Q3

REPORT INFORMATION
  Report Type: Spontaneous
  Country: US (occurrence: None)
  Receive Date: 20130830
  Receipt Date: 20130830
  Transmission Date: 20140515
  Serious: Yes (Other)
  Sender: FDA-Public Use
  Company Number: AUR-APL-2013-07198

PATIENT
  Age: 65 Year
  Sex: Male
  Weight: 81.63 kg

DRUGS (1)
  1. VENLAFAXINE [Suspect]
     Indication: DEPRESSION
     Dates: start: 201211

REACTIONS (3)
  - Abnormal dreams [None]
  - Intentional self-injury [None]
  - Sleep apnoea syndrome [None]
